FAERS Safety Report 4363690-8 (Version None)
Quarter: 2004Q2

REPORT INFORMATION
  Report Type: 
  Country: None (occurrence: None)
  Receive Date: 20040521
  Receipt Date: 20040521
  Transmission Date: 20050107
  Serious: No
  Sender: FDA-Public Use
  Company Number: None

PATIENT
  Sex: Male
  Weight: 7.74 kg

DRUGS (15)
  1. CYTOXAN [Suspect]
     Indication: RHABDOMYOSARCOMA
     Dosage: 565 MG X 5 DAYS IV
     Route: 042
     Dates: start: 20040210, end: 20040214
  2. ACTINOMYCIN-B [Suspect]
     Indication: RHABDOMYOSARCOMA
     Dosage: 0.35 MG X 1 DAY IV
     Route: 042
     Dates: start: 20040210, end: 20040210
  3. TPN [Concomitant]
  4. MAXIPIME [Concomitant]
  5. REGLAN [Concomitant]
  6. ZOFRAN [Concomitant]
  7. BACTRIM [Concomitant]
  8. CAPTROPRIL [Concomitant]
  9. LACTO-BACILLUS [Concomitant]
  10. ZANTAC [Concomitant]
  11. NSYTATIN [Concomitant]
  12. VANCOMYCIN [Concomitant]
  13. BENE-FIBER [Concomitant]
  14. BENADRYL [Concomitant]
  15. FAGYL [Concomitant]

REACTIONS (3)
  - SINUS CONGESTION [None]
  - VASCULAR PURPURA [None]
  - VENOUS OCCLUSION [None]
